FAERS Safety Report 12466807 (Version 1)
Quarter: 2016Q2

REPORT INFORMATION
  Report Type: Spontaneous
  Country: US (occurrence: None)
  Receive Date: 20160614
  Receipt Date: 20160614
  Transmission Date: 20160815
  Serious: No
  Sender: FDA-Public Use
  Company Number: None

PATIENT

DRUGS (2)
  1. CLONIDINE CLONIDINE PATCH [Suspect]
     Active Substance: CLONIDINE
     Route: 048
  2. TRAMADOL TRAMADOL 50 MG [Suspect]
     Active Substance: TRAMADOL
     Route: 048

REACTIONS (1)
  - Drug dispensing error [None]
